FAERS Safety Report 21901315 (Version 2)
Quarter: 2023Q4

REPORT INFORMATION
  Report Type: Spontaneous
  Country: US (occurrence: US)
  Receive Date: 20230123
  Receipt Date: 20231013
  Transmission Date: 20240110
  Serious: Yes (Other)
  Sender: FDA-Public Use
  Company Number: US-GILEAD-2023-0613443

PATIENT
  Age: 55 Year
  Sex: Male
  Weight: 81.633 kg

DRUGS (9)
  1. VIREAD [Suspect]
     Active Substance: TENOFOVIR DISOPROXIL FUMARATE
     Indication: HIV infection
     Dosage: UNK
     Route: 048
     Dates: start: 200310, end: 201601
  2. EPIVIR [Concomitant]
     Active Substance: LAMIVUDINE
  3. EPZICOM [Concomitant]
     Active Substance: ABACAVIR SULFATE\LAMIVUDINE
  4. NORVIR [Concomitant]
     Active Substance: RITONAVIR
  5. REYATAZ [Concomitant]
     Active Substance: ATAZANAVIR SULFATE
  6. SUSTIVA [Concomitant]
     Active Substance: EFAVIRENZ
  7. ATORVASTATIN [Concomitant]
     Active Substance: ATORVASTATIN
  8. ABACAVIR [Concomitant]
     Active Substance: ABACAVIR
  9. LISINOPRIL [Concomitant]
     Active Substance: LISINOPRIL

REACTIONS (5)
  - Chronic kidney disease [Not Recovered/Not Resolved]
  - Pain [Not Recovered/Not Resolved]
  - Emotional distress [Not Recovered/Not Resolved]
  - Anxiety [Not Recovered/Not Resolved]
  - Anhedonia [Not Recovered/Not Resolved]

NARRATIVE: CASE EVENT DATE: 20130601
